FAERS Safety Report 12568203 (Version 1)
Quarter: 2016Q3

REPORT INFORMATION
  Report Type: Spontaneous
  Country: US (occurrence: US)
  Receive Date: 20160718
  Receipt Date: 20160718
  Transmission Date: 20161109
  Serious: No
  Sender: FDA-Public Use
  Company Number: US-ACTELION-A-US2016-138930

PATIENT
  Age: 53 Year
  Sex: Male

DRUGS (6)
  1. VALCHLOR [Suspect]
     Active Substance: MECHLORETHAMINE
     Indication: MYCOSIS FUNGOIDES
     Dosage: UNK
     Route: 061
     Dates: start: 20160609
  2. CANAGLIFLOZIN [Concomitant]
     Active Substance: CANAGLIFLOZIN
  3. VICTOZA [Concomitant]
     Active Substance: LIRAGLUTIDE
  4. FISH OIL [Concomitant]
     Active Substance: FISH OIL
  5. JANUVIA [Concomitant]
     Active Substance: SITAGLIPTIN PHOSPHATE
  6. CINNAMON. [Concomitant]
     Active Substance: CINNAMON

REACTIONS (2)
  - Burning sensation [Unknown]
  - Skin disorder [Unknown]
